FAERS Safety Report 11951640 (Version 1)
Quarter: 2016Q1

REPORT INFORMATION
  Report Type: Spontaneous
  Country: US (occurrence: US)
  Receive Date: 20160126
  Receipt Date: 20160126
  Transmission Date: 20160526
  Serious: Yes (Other)
  Sender: FDA-Public Use
  Company Number: US-PFIZER INC-2016035083

PATIENT
  Age: 17 Year
  Sex: Male

DRUGS (1)
  1. XANAX [Suspect]
     Active Substance: ALPRAZOLAM
     Dosage: OBVIOUSLY ABUNDANT

REACTIONS (7)
  - Intentional product misuse [Unknown]
  - Abnormal behaviour [Unknown]
  - Aggression [Unknown]
  - Anger [Unknown]
  - Crying [Unknown]
  - Screaming [Unknown]
  - Psychotic behaviour [Unknown]
